FAERS Safety Report 9482958 (Version 1)
Quarter: 2013Q3

REPORT INFORMATION
  Report Type: Spontaneous
  Country: CA (occurrence: CA)
  Receive Date: 20130828
  Receipt Date: 20130828
  Transmission Date: 20140515
  Serious: Yes (Death, Other)
  Sender: FDA-Public Use
  Company Number: CA-AMGEN-US058755

PATIENT
  Age: 52 Year
  Sex: Female

DRUGS (1)
  1. ENBREL [Suspect]
     Indication: GRANULOMATOSIS WITH POLYANGIITIS
     Dosage: 25 MG, 2 TIMES/WK
     Route: 058
     Dates: start: 20011105, end: 20030324

REACTIONS (2)
  - Multi-organ failure [Fatal]
  - Pneumonia [None]
